FAERS Safety Report 4724781-2 (Version None)
Quarter: 2005Q3

REPORT INFORMATION
  Report Type: 
  Country: None (occurrence: None)
  Receive Date: 20050726
  Receipt Date: 20050721
  Transmission Date: 20060218
  Serious: Yes (Hospitalization)
  Sender: FDA-Public Use
  Company Number: CH-GLAXOSMITHKLINE-B0388638A

PATIENT
  Age: 31 Year
  Sex: Female
  Weight: 104 kg

DRUGS (3)
  1. DEROXAT [Suspect]
     Dosage: 10MG PER DAY
     Route: 048
     Dates: start: 20030101, end: 20050616
  2. CLINDAMYCIN [Concomitant]
     Dosage: 300MG THREE TIMES PER DAY
     Route: 048
     Dates: start: 20050525, end: 20050610
  3. SUPRADYN [Concomitant]
     Route: 048

REACTIONS (5)
  - NEUTROPENIA [None]
  - NORMOCHROMIC NORMOCYTIC ANAEMIA [None]
  - PARVOVIRUS INFECTION [None]
  - PYREXIA [None]
  - RETICULOCYTE COUNT DECREASED [None]
